FAERS Safety Report 5286826-3 (Version None)
Quarter: 2007Q1

REPORT INFORMATION
  Report Type: 
  Country: None (occurrence: None)
  Receive Date: 20070329
  Receipt Date: 20070315
  Transmission Date: 20070707
  Serious: Yes (Life-Threatening, Hospitalization)
  Sender: FDA-Public Use
  Company Number: B0463092A

PATIENT
  Age: 67 Year
  Sex: Female

DRUGS (8)
  1. ZINACEF [Suspect]
     Indication: COUGH
     Dosage: UNK, SEE DOSAGE TEXT, INTRADERM
     Route: 023
     Dates: start: 20050721, end: 20050721
  2. CEFTIN [Suspect]
     Indication: DRUG USE FOR UNKNOWN INDICATION
     Dosage: ORAL
     Route: 048
  3. AMBROXOL [Concomitant]
  4. LIQUORICE [Concomitant]
  5. DIPROPHYLLINE [Concomitant]
  6. SULPERAZON [Concomitant]
  7. CLINDAMYCIN [Concomitant]
  8. LEVOFLOXACIN [Concomitant]

REACTIONS (8)
  - ANAPHYLACTIC SHOCK [None]
  - CHOKING [None]
  - DYSPNOEA [None]
  - ERYTHEMA [None]
  - HEART RATE DECREASED [None]
  - LOSS OF CONSCIOUSNESS [None]
  - RESPIRATORY RATE DECREASED [None]
  - RHYTHM IDIOVENTRICULAR [None]
